FAERS Safety Report 5300268-3 (Version None)
Quarter: 2007Q2

REPORT INFORMATION
  Report Type: 
  Country: None (occurrence: None)
  Receive Date: 20070418
  Receipt Date: 20070417
  Transmission Date: 20071010
  Serious: Yes (Life-Threatening)
  Sender: FDA-Public Use
  Company Number: US-BRISTOL-MYERS SQUIBB COMPANY-13749593

PATIENT

DRUGS (1)
  1. DEFINITY [Suspect]

REACTIONS (1)
  - CARDIO-RESPIRATORY ARREST [None]
